FAERS Safety Report 8785887 (Version 1)
Quarter: 2012Q4

REPORT INFORMATION
  Report Type: Report from Study
  Country: US (occurrence: US)
  Receive Date: 20120914
  Receipt Date: 20120914
  Transmission Date: 20130627
  Serious: Yes (Other)
  Sender: FDA-Public Use
  Company Number: US-ABBOTT-12P-163-0977133-00

PATIENT
  Age: 52 Year
  Sex: Male

DRUGS (4)
  1. HUMIRA [Suspect]
     Indication: PSORIASIS
     Dates: start: 2008, end: 201204
  2. IBUPROFEN [Suspect]
     Indication: PAIN
     Dosage: 1 tablet, 3 times daily
  3. VICODIN [Suspect]
     Indication: PRODUCT USED FOR UNKNOWN INDICATION
     Dosage: 1-2 tabs daily
  4. STELARA [Suspect]
     Indication: PRODUCT USED FOR UNKNOWN INDICATION
     Dosage: 2 doses
     Dates: start: 201203

REACTIONS (11)
  - Arthritis [Not Recovered/Not Resolved]
  - Pain [Unknown]
  - Poor quality sleep [Unknown]
  - Mobility decreased [Unknown]
  - Gait disturbance [Unknown]
  - Hypoaesthesia [Unknown]
  - Asthenia [Unknown]
  - Joint injury [Unknown]
  - Arthralgia [Unknown]
  - Abdominal discomfort [Unknown]
  - Drug effect incomplete [Unknown]
